FAERS Safety Report 11691794 (Version 1)
Quarter: 2015Q4

REPORT INFORMATION
  Report Type: Spontaneous
  Country: US (occurrence: US)
  Receive Date: 20151103
  Receipt Date: 20151103
  Transmission Date: 20160304
  Serious: No
  Sender: FDA-Public Use
  Company Number: US-OTSUKA-2015_008087

PATIENT
  Sex: Female

DRUGS (3)
  1. LAMICTAL [Concomitant]
     Active Substance: LAMOTRIGINE
     Indication: BIPOLAR DISORDER
     Dosage: UNK
     Route: 065
  2. REXULTI [Suspect]
     Active Substance: BREXPIPRAZOLE
     Dosage: 0.5 MG, UNK
     Route: 065
  3. REXULTI [Suspect]
     Active Substance: BREXPIPRAZOLE
     Indication: BIPOLAR DISORDER
     Dosage: 0.25 MG, UNK
     Route: 065

REACTIONS (11)
  - Somnolence [Unknown]
  - Tremor [Unknown]
  - Anxiety [Unknown]
  - Mood altered [Unknown]
  - Vertigo [Unknown]
  - Aggression [Unknown]
  - Food interaction [Unknown]
  - Abnormal behaviour [Unknown]
  - Insomnia [Unknown]
  - Hyperhidrosis [Unknown]
  - Product use issue [Unknown]
